FAERS Safety Report 7613761-5 (Version None)
Quarter: 2011Q3

REPORT INFORMATION
  Report Type: 
  Country: None (occurrence: None)
  Receive Date: 20110708
  Receipt Date: 20110629
  Transmission Date: 20111222
  Serious: Yes (Other)
  Sender: FDA-Public Use
  Company Number: DSA_47050_2011

PATIENT

DRUGS (1)
  1. XENAZINE [Suspect]
     Indication: TOURETTE'S DISORDER
     Dosage: DF

REACTIONS (4)
  - SOMNOLENCE [None]
  - BRAIN OPERATION [None]
  - ATTENTION DEFICIT/HYPERACTIVITY DISORDER [None]
  - SUICIDAL IDEATION [None]
